FAERS Safety Report 21297594 (Version 1)
Quarter: 2022Q3

REPORT INFORMATION
  Report Type: Spontaneous
  Country: US (occurrence: None)
  Receive Date: 20220902
  Receipt Date: 20220902
  Transmission Date: 20221027
  Serious: Yes (Hospitalization)
  Sender: FDA-Public Use
  Company Number: None

PATIENT
  Age: 61 Year
  Sex: Female

DRUGS (29)
  1. OPSUMIT [Suspect]
     Active Substance: MACITENTAN
     Indication: Pulmonary arterial hypertension
     Dosage: FREQUENCY : DAILY;?
     Route: 048
     Dates: start: 20181108
  2. OPSUMIT [Suspect]
     Active Substance: MACITENTAN
     Indication: Heritable pulmonary arterial hypertension
  3. TADALAFIL [Suspect]
     Active Substance: TADALAFIL
  4. LASIX [Concomitant]
     Active Substance: FUROSEMIDE
  5. K-TAB [Concomitant]
     Active Substance: POTASSIUM CHLORIDE
  6. LOPERAMIDE [Concomitant]
     Active Substance: LOPERAMIDE
  7. WIXELA INHUB [Concomitant]
     Active Substance: FLUTICASONE PROPIONATE\SALMETEROL XINAFOATE
  8. WARFARIN [Concomitant]
     Active Substance: WARFARIN
  9. ZOFRAN [Concomitant]
     Active Substance: ONDANSETRON HYDROCHLORIDE
  10. ZOFRAN [Concomitant]
     Active Substance: ONDANSETRON HYDROCHLORIDE
  11. ALBUTEROL [Concomitant]
     Active Substance: ALBUTEROL
  12. IPRATROPIUM INHL SOLN [Concomitant]
  13. TRAMADOL [Concomitant]
     Active Substance: TRAMADOL
  14. FLONASE [Concomitant]
     Active Substance: FLUTICASONE PROPIONATE
  15. ALPRAZOLAM [Concomitant]
     Active Substance: ALPRAZOLAM
  16. MONTELUKAST [Concomitant]
     Active Substance: MONTELUKAST SODIUM
  17. LEVOTHYROXINE [Concomitant]
     Active Substance: LEVOTHYROXINE
  18. DIGOXIN [Concomitant]
     Active Substance: DIGOXIN
  19. LIOTHYRONINE [Concomitant]
     Active Substance: LIOTHYRONINE
  20. ACYCLOVIR [Concomitant]
     Active Substance: ACYCLOVIR
  21. BISOPROLOL [Concomitant]
     Active Substance: BISOPROLOL
  22. SPIRONOLACTONE [Concomitant]
     Active Substance: SPIRONOLACTONE
  23. METOLAZONE [Concomitant]
     Active Substance: METOLAZONE
  24. OMEPRAZOLE [Concomitant]
     Active Substance: OMEPRAZOLE
  25. MELOXICAM [Concomitant]
     Active Substance: MELOXICAM
  26. CETIRIZINE [Concomitant]
     Active Substance: CETIRIZINE HYDROCHLORIDE
  27. ASXORBIC ACID [Concomitant]
  28. OXYGEN INTRANASAL [Concomitant]
  29. TYLENOL [Concomitant]
     Active Substance: ACETAMINOPHEN

REACTIONS (1)
  - Chronic left ventricular failure [None]

NARRATIVE: CASE EVENT DATE: 20220805
